FAERS Safety Report 5105086-7 (Version None)
Quarter: 2006Q3

REPORT INFORMATION
  Report Type: 
  Country: None (occurrence: None)
  Receive Date: 20060911
  Receipt Date: 20060829
  Transmission Date: 20061208
  Serious: Yes (Other)
  Sender: FDA-Public Use
  Company Number: 2006105647

PATIENT
  Age: 69 Year
  Sex: Male
  Weight: 72.5755 kg

DRUGS (3)
  1. DILANTIN [Suspect]
     Indication: CONVULSION
     Dates: start: 19640101, end: 20060101
  2. KEPPRA [Suspect]
     Indication: CONVULSION
     Dates: start: 20060101, end: 20060101
  3. TOPAMAX [Suspect]
     Indication: CONVULSION
     Dates: start: 20060101, end: 20060801

REACTIONS (11)
  - ARTERIOVENOUS MALFORMATION [None]
  - CONVULSION [None]
  - DIZZINESS [None]
  - DRUG EFFECT DECREASED [None]
  - HEART RATE IRREGULAR [None]
  - HYPOAESTHESIA [None]
  - PALPITATIONS [None]
  - PARAESTHESIA [None]
  - RHINORRHOEA [None]
  - SLEEP DISORDER [None]
  - VISION BLURRED [None]
